FAERS Safety Report 7284030-0 (Version None)
Quarter: 2011Q1

REPORT INFORMATION
  Report Type: 
  Country: None (occurrence: None)
  Receive Date: 20110209
  Receipt Date: 20110203
  Transmission Date: 20110831
  Serious: Yes (Death)
  Sender: FDA-Public Use
  Company Number: US-GENZYME-FABR-1001671

PATIENT
  Sex: Male
  Weight: 90 kg

DRUGS (1)
  1. FABRAZYME [Suspect]
     Indication: FABRY'S DISEASE
     Dosage: 90 MG, Q2W
     Route: 042
     Dates: start: 20030701, end: 20101025

REACTIONS (3)
  - RENAL FAILURE [None]
  - MALAISE [None]
  - SEPSIS [None]
